FAERS Safety Report 16872340 (Version 3)
Quarter: 2020Q1

REPORT INFORMATION
  Report Type: Report from Study
  Country: SA (occurrence: SA)
  Receive Date: 20191001
  Receipt Date: 20200106
  Transmission Date: 20200409
  Serious: Yes (Hospitalization, Other)
  Sender: FDA-Public Use
  Company Number: SA-CELLTRION INC.-2019SA024966

PATIENT

DRUGS (6)
  1. REMSIMA [Suspect]
     Active Substance: INFLIXIMAB
     Indication: CROHN^S DISEASE
     Dosage: 345 MG AT 0,2,6 WEEKS
     Route: 042
     Dates: start: 20190513
  2. ENTECAVIR. [Concomitant]
     Active Substance: ENTECAVIR
     Indication: PROPHYLAXIS
     Dosage: 0.5 MILLIGRAM, QD
     Route: 048
     Dates: start: 20190428
  3. REMSIMA [Suspect]
     Active Substance: INFLIXIMAB
     Indication: DIARRHOEA
     Dosage: 345 MG AT 0,2,6 WEEKS
     Route: 042
     Dates: start: 20190708
  4. PENTASA [Concomitant]
     Active Substance: MESALAMINE
     Indication: PRODUCT USED FOR UNKNOWN INDICATION
     Dosage: UNK
     Route: 065
  5. IMURAN [Concomitant]
     Active Substance: AZATHIOPRINE
     Indication: PRODUCT USED FOR UNKNOWN INDICATION
     Dosage: UNK
     Route: 065
  6. REMSIMA [Suspect]
     Active Substance: INFLIXIMAB
     Indication: ABDOMINAL PAIN

REACTIONS (2)
  - Tuberculosis [Not Recovered/Not Resolved]
  - Overdose [Unknown]

NARRATIVE: CASE EVENT DATE: 20190513
